FAERS Safety Report 7337093-8 (Version None)
Quarter: 2011Q1

REPORT INFORMATION
  Report Type: 
  Country: None (occurrence: None)
  Receive Date: 20110308
  Receipt Date: 20110307
  Transmission Date: 20110831
  Serious: Yes (Other)
  Sender: FDA-Public Use
  Company Number: PHHY2011NZ13965

PATIENT
  Age: 41 Year
  Sex: Male

DRUGS (12)
  1. METOPROLOL [Suspect]
     Dosage: 95 MG, UNK
  2. METOPROLOL [Suspect]
     Dosage: 47.5 MG, UNK
  3. CILAZAPRIL [Suspect]
     Dosage: 5 MG, DAILY
  4. INSULIN HUMULIN [Concomitant]
     Dosage: 80 U, UNK
     Dates: end: 20100701
  5. METOPROLOL [Suspect]
     Dosage: 190 MG, UNK
  6. CHLORTHALIDONE [Suspect]
     Dosage: 12.5 MG, UNK
  7. CILAZAPRIL [Suspect]
     Dosage: 5 MG, UNK
  8. INSULIN [Concomitant]
     Dosage: UNK
     Dates: start: 20080401, end: 20100701
  9. METOPROLOL [Suspect]
     Dosage: 95 MG, DAILY
  10. METOPROLOL [Suspect]
     Dosage: 47.5 MG, DAILY
  11. AMLODIPINE [Suspect]
     Dosage: 10 MG, DAILY
  12. PHENTOLAMINE MESYLATE [Concomitant]
     Route: 042

REACTIONS (14)
  - DIZZINESS [None]
  - PARAGANGLION NEOPLASM [None]
  - HYPERHIDROSIS [None]
  - HYPOGLYCAEMIA [None]
  - BLOOD PRESSURE INADEQUATELY CONTROLLED [None]
  - ORTHOSTATIC HYPOTENSION [None]
  - BLOOD PRESSURE INCREASED [None]
  - HOT FLUSH [None]
  - CHEST PAIN [None]
  - RENAL IMPAIRMENT [None]
  - PHAEOCHROMOCYTOMA [None]
  - BLOOD PRESSURE SYSTOLIC DECREASED [None]
  - PALPITATIONS [None]
  - HEADACHE [None]
